FAERS Safety Report 15675685 (Version 2)
Quarter: 2018Q4

REPORT INFORMATION
  Report Type: Report from Study
  Country: DE (occurrence: DE)
  Receive Date: 20181130
  Receipt Date: 20181213
  Transmission Date: 20190205
  Serious: Yes (Other)
  Sender: FDA-Public Use
  Company Number: DE-LPDUSPRD-20182253

PATIENT
  Age: 69 Year
  Sex: Male

DRUGS (8)
  1. INSPRA [Concomitant]
     Active Substance: EPLERENONE
     Dosage: 25 1 DOSAGE FORMS,1 IN 1 D
     Route: 065
  2. ULTIBRO [Concomitant]
     Active Substance: GLYCOPYRRONIUM\INDACATEROL
     Dosage: 85/43 1 DOSAGE FORMS,1 IN 1 D
     Route: 065
  3. ALLOPURINOL. [Concomitant]
     Active Substance: ALLOPURINOL
     Dosage: 300 2 DOSAGE FORMS 1 IN 1 D
     Route: 065
  4. FERINJECT [Suspect]
     Active Substance: FERRIC CARBOXYMALTOSE
     Dosage: UNKNOWN
     Route: 065
  5. NEBIVOLOL. [Concomitant]
     Active Substance: NEBIVOLOL
     Dosage: 5 0.25 DOSAGE FORMS,1 IN 1 D
     Route: 065
  6. SIMVASTATIN. [Concomitant]
     Active Substance: SIMVASTATIN
     Dosage: 20 1 DOSAGE FORMS,1 IN 1 D
     Route: 065
  7. PROCORALAN [Concomitant]
     Active Substance: IVABRADINE
     Dosage: 5 2 DOSAGE FORMS,1 IN 1 D
     Route: 065
  8. ASPIRIN. [Concomitant]
     Active Substance: ASPIRIN
     Dosage: 100 1 DOSAGE FORMS,1 IN 1 D
     Route: 065

REACTIONS (10)
  - Nasopharyngitis [Unknown]
  - Neuralgia [Unknown]
  - Decreased appetite [Unknown]
  - Productive cough [Unknown]
  - Visual impairment [Unknown]
  - Anaemia [Unknown]
  - Cataract [Unknown]
  - Sinusitis [Unknown]
  - Lung neoplasm malignant [Unknown]
  - Diarrhoea [Unknown]

NARRATIVE: CASE EVENT DATE: 20151006
